FAERS Safety Report 12711958 (Version 3)
Quarter: 2019Q2

REPORT INFORMATION
  Report Type: Report from Study
  Country: US (occurrence: US)
  Receive Date: 20160902
  Receipt Date: 20190426
  Transmission Date: 20190711
  Serious: Yes (Hospitalization)
  Sender: FDA-Public Use
  Company Number: US-ARIAD PHARMACEUTICALS, INC-2016US006889

PATIENT
  Sex: Male
  Weight: 84 kg

DRUGS (1)
  1. PONATINIB [Suspect]
     Active Substance: PONATINIB
     Indication: CHRONIC MYELOID LEUKAEMIA (IN REMISSION)
     Dosage: 15 MG, QD
     Route: 048
     Dates: start: 2013

REACTIONS (5)
  - Pneumonia [Unknown]
  - Cardiac valve disease [Unknown]
  - Peripheral arterial occlusive disease [Not Recovered/Not Resolved]
  - Blood urine present [Unknown]
  - Infection [Unknown]
